FAERS Safety Report 11337028 (Version 1)
Quarter: 2015Q3

REPORT INFORMATION
  Report Type: Report from Study
  Country: US (occurrence: US)
  Receive Date: 20150804
  Receipt Date: 20150804
  Transmission Date: 20151125
  Serious: Yes (Other)
  Sender: FDA-Public Use
  Company Number: US-CELGENE-USA-2015074985

PATIENT
  Age: 78 Year

DRUGS (3)
  1. CARFILZOMIB [Concomitant]
     Active Substance: CARFILZOMIB
     Indication: PLASMA CELL MYELOMA
     Route: 041
     Dates: start: 20140902
  2. CARFILZOMIB [Concomitant]
     Active Substance: CARFILZOMIB
     Route: 041
     Dates: end: 20150121
  3. REVLIMID [Suspect]
     Active Substance: LENALIDOMIDE
     Indication: PLASMA CELL MYELOMA
     Dosage: 5 MILLIGRAM
     Route: 048
     Dates: start: 20140902, end: 20150121

REACTIONS (1)
  - Thyroid neoplasm [Unknown]

NARRATIVE: CASE EVENT DATE: 20141210
